FAERS Safety Report 4382606-1 (Version None)
Quarter: 2004Q2

REPORT INFORMATION
  Report Type: 
  Country: None (occurrence: None)
  Receive Date: 20040617
  Receipt Date: 20040602
  Transmission Date: 20050107
  Serious: Yes (Other)
  Sender: FDA-Public Use
  Company Number: CHPA2003US02262

PATIENT
  Age: 58 Year
  Sex: Male
  Weight: 90.7 kg

DRUGS (1)
  1. TRANSDERM SCOP [Suspect]
     Indication: MOTION SICKNESS
     Dosage: 1 PATCH, ONCE/SINGLE, TRANSDERMAL
     Route: 062
     Dates: start: 20030213, end: 20030217

REACTIONS (4)
  - BALANCE DISORDER [None]
  - HEADACHE [None]
  - SENSORY DISTURBANCE [None]
  - SINUS DISORDER [None]
